FAERS Safety Report 6906121-3 (Version None)
Quarter: 2010Q3

REPORT INFORMATION
  Report Type: 
  Country: None (occurrence: None)
  Receive Date: 20100804
  Receipt Date: 20100722
  Transmission Date: 20110219
  Serious: Yes (Death)
  Sender: FDA-Public Use
  Company Number: KR-GENENTECH-304786

PATIENT
  Age: 79 Year
  Sex: Female

DRUGS (2)
  1. RITUXIMAB [Suspect]
     Indication: DIFFUSE LARGE B-CELL LYMPHOMA
     Dosage: UNK
     Route: 042
  2. CHEMOTHERAPY [Concomitant]
     Indication: DIFFUSE LARGE B-CELL LYMPHOMA
     Dosage: UNK

REACTIONS (2)
  - ACUTE HEPATIC FAILURE [None]
  - HEPATITIS B [None]
